FAERS Safety Report 6857275-9 (Version None)
Quarter: 2010Q3

REPORT INFORMATION
  Report Type: 
  Country: None (occurrence: None)
  Receive Date: 20100719
  Receipt Date: 20100713
  Transmission Date: 20110219
  Serious: Yes (Hospitalization)
  Sender: FDA-Public Use
  Company Number: FR-KINGPHARMUSA00001-K201000879

PATIENT
  Sex: Female

DRUGS (5)
  1. ALTACE [Suspect]
     Indication: HYPERTENSION
     Dosage: 80 MG, QD
     Route: 048
     Dates: start: 20100502
  2. TENORETIC 100 [Suspect]
     Indication: HYPERTENSION
     Dosage: 100/25 MG, QD
     Route: 048
     Dates: start: 20100502, end: 20100619
  3. DOXAZOSIN [Suspect]
     Indication: HYPERTENSION
     Dosage: 2 MG, QD
     Route: 048
     Dates: start: 20100618, end: 20100619
  4. VERAPAMIL [Suspect]
     Indication: HYPERTENSION
     Dosage: 80 MG, QD
     Route: 048
     Dates: start: 20100502
  5. SIVASTIN [Concomitant]

REACTIONS (6)
  - EXTRADURAL HAEMATOMA [None]
  - HEAD INJURY [None]
  - ORTHOSTATIC HYPOTENSION [None]
  - SKULL FRACTURE [None]
  - SUBDURAL HAEMATOMA [None]
  - SYNCOPE [None]
